FAERS Safety Report 16952604 (Version 1)
Quarter: 2019Q4

REPORT INFORMATION
  Report Type: Spontaneous
  Country: GB (occurrence: GB)
  Receive Date: 20191023
  Receipt Date: 20191023
  Transmission Date: 20200122
  Serious: Yes (Hospitalization)
  Sender: FDA-Public Use
  Company Number: GB-MYLANLABS-2019M1099711

PATIENT
  Age: 69 Year
  Sex: Male
  Weight: 95 kg

DRUGS (6)
  1. CLOPIDOGREL [Concomitant]
     Active Substance: CLOPIDOGREL BISULFATE
     Dosage: UNK
  2. ASPIRIN                            /00002701/ [Concomitant]
     Active Substance: ASPIRIN
  3. LANSOPRAZOLE. [Suspect]
     Active Substance: LANSOPRAZOLE
     Indication: PRODUCT USED FOR UNKNOWN INDICATION
     Dosage: 15 MILLIGRAM
     Dates: start: 201906
  4. BISOPROLOL [Concomitant]
     Active Substance: BISOPROLOL
     Dosage: UNK
  5. FOLPIK [Concomitant]
  6. RAMIPRIL. [Concomitant]
     Active Substance: RAMIPRIL

REACTIONS (8)
  - Photophobia [Recovered/Resolved]
  - Pyrexia [Recovered/Resolved]
  - Somnolence [Recovered/Resolved]
  - Balance disorder [Recovered/Resolved]
  - Confusional state [Recovered/Resolved]
  - Vomiting [Recovered/Resolved]
  - Visual impairment [Recovered/Resolved]
  - Vertigo [Recovered/Resolved]
